FAERS Safety Report 24744916 (Version 2)
Quarter: 2024Q4

REPORT INFORMATION
  Report Type: Spontaneous
  Country: BG (occurrence: BG)
  Receive Date: 20241217
  Receipt Date: 20241219
  Transmission Date: 20250114
  Serious: Yes (Other)
  Sender: NOVARTIS
  Company Number: BG-002147023-NVSC2024BG237806

PATIENT
  Age: 76 Year
  Sex: Male

DRUGS (3)
  1. HYDROCHLOROTHIAZIDE\VALSARTAN [Suspect]
     Active Substance: HYDROCHLOROTHIAZIDE\VALSARTAN
     Indication: Hypertension
     Dosage: 160 MG/12.5 MG  ADMINISTRATED ONCE IN THE MORNING FOR THE PAST 10 YEARS
     Route: 065
  2. VALSARTAN [Suspect]
     Active Substance: VALSARTAN
     Indication: Hypertension
     Dosage: 160 MG, QD (IN THE MORNING)
     Route: 065
  3. BISOPROLOL FUMARATE [Suspect]
     Active Substance: BISOPROLOL FUMARATE
     Indication: Hypertension
     Dosage: BISOPROLOL FUMARATE HALF A  TABLET TWICE DAILY
     Route: 065

REACTIONS (1)
  - Nodular melanoma [Unknown]
